FAERS Safety Report 7522822-0 (Version None)
Quarter: 2011Q2

REPORT INFORMATION
  Report Type: 
  Country: None (occurrence: None)
  Receive Date: 20110603
  Receipt Date: 20110531
  Transmission Date: 20111010
  Serious: Yes (Other)
  Sender: FDA-Public Use
  Company Number: DE-PFIZER INC-2011118785

PATIENT
  Age: 17 Month
  Sex: Male
  Weight: 10 kg

DRUGS (3)
  1. REVATIO [Suspect]
     Indication: PULMONARY ARTERIAL HYPERTENSION
     Dosage: 0.125 MG/KG, UNK
     Dates: start: 20110501
  2. DOBUTAMINE [Concomitant]
     Indication: SEDATION
  3. KETAMINE [Concomitant]
     Indication: SEDATION

REACTIONS (2)
  - MEAN ARTERIAL PRESSURE DECREASED [None]
  - HYPOTENSION [None]
